FAERS Safety Report 20626085 (Version 1)
Quarter: 2022Q1

REPORT INFORMATION
  Report Type: Spontaneous
  Country: US (occurrence: US)
  Receive Date: 20220323
  Receipt Date: 20220323
  Transmission Date: 20220423
  Serious: No
  Sender: FDA-Public Use
  Company Number: US-SUN PHARMACEUTICAL INDUSTRIES LTD-2021R1-323023

PATIENT
  Age: 33 Year
  Sex: Male
  Weight: 114 kg

DRUGS (1)
  1. TECHNETIUM TC-99M MEBROFENIN [Suspect]
     Active Substance: TECHNETIUM TC-99M MEBROFENIN
     Indication: Abdominal pain upper
     Dosage: 6.0 MCI
     Route: 065
     Dates: start: 20211227, end: 20211227

REACTIONS (1)
  - Hypersensitivity [Unknown]

NARRATIVE: CASE EVENT DATE: 20211227
